FAERS Safety Report 7624489-X (Version None)
Quarter: 2011Q3

REPORT INFORMATION
  Report Type: 
  Country: None (occurrence: None)
  Receive Date: 20110720
  Receipt Date: 20110714
  Transmission Date: 20111222
  Serious: Yes (Hospitalization)
  Sender: FDA-Public Use
  Company Number: US-B.I. PHARMACEUTICALS,INC./RIDGEFIELD-2011-BP-14463BP

PATIENT
  Age: 78 Year
  Sex: Female
  Weight: 54.43 kg

DRUGS (21)
  1. MELOXICAM [Concomitant]
     Indication: MUSCULOSKELETAL DISCOMFORT
  2. VITAMIN B-12 [Concomitant]
  3. COUMADIN [Concomitant]
     Dosage: 5 MG
  4. METOPROLOL TARTRATE [Concomitant]
     Dates: start: 20110308
  5. PRADAXA [Suspect]
     Indication: ATRIAL FIBRILLATION
     Dosage: 300 MG
     Route: 048
     Dates: start: 20110201, end: 20110604
  6. METFORMIN HCL [Concomitant]
     Dosage: 1000 MG
  7. HYDRALAZINE HCL [Concomitant]
     Dosage: 50 MG
  8. ASCORBIC ACID [Concomitant]
  9. VITAMIN D 2000 [Concomitant]
  10. FUROSEMIDE [Concomitant]
     Dosage: 40 MG
  11. DIOVAN [Concomitant]
  12. HYDROCHLOROTHIAZIDE [Concomitant]
     Dosage: 25 MG
  13. MULTAG [Concomitant]
     Indication: ATRIAL FIBRILLATION
     Dates: start: 20110419, end: 20110601
  14. MULTI VITAMIN AND MINERALS WITH FOLIC ACID, NO K [Concomitant]
  15. PRADAXA [Suspect]
     Indication: ANTICOAGULANT THERAPY
  16. FISH OIL [Concomitant]
  17. OXYGEN [Concomitant]
     Indication: SLEEP APNOEA SYNDROME
  18. OMERPRAZOLE [Concomitant]
     Indication: GASTROOESOPHAGEAL REFLUX DISEASE
  19. SIMVASTATIN [Concomitant]
  20. GABAPENTIN [Concomitant]
     Dates: start: 20090317
  21. CALCIUM 600 MG PLUS D [Concomitant]

REACTIONS (7)
  - PLEURAL EFFUSION [None]
  - INFLUENZA [None]
  - DYSPNOEA [None]
  - ALOPECIA [None]
  - FREQUENT BOWEL MOVEMENTS [None]
  - PNEUMONIA [None]
  - DIARRHOEA [None]
